FAERS Safety Report 11521338 (Version 1)
Quarter: 2015Q3

REPORT INFORMATION
  Report Type: Spontaneous
  Country: US (occurrence: US)
  Receive Date: 20150918
  Receipt Date: 20150918
  Transmission Date: 20151125
  Serious: No
  Sender: FDA-Public Use
  Company Number: US-ROCHE-720577

PATIENT
  Age: 57 Year
  Sex: Male

DRUGS (5)
  1. PEGASYS [Suspect]
     Active Substance: PEGINTERFERON ALFA-2A
     Indication: HEPATITIS C
     Dosage: FORM: PRE-FILLED SYRINGE
     Route: 058
  2. VITAMIN C [Concomitant]
     Active Substance: ASCORBIC ACID
     Route: 065
  3. PROCRIT [Concomitant]
     Active Substance: ERYTHROPOIETIN
     Route: 065
  4. MILK THISTLE [Concomitant]
     Active Substance: MILK THISTLE
     Route: 065
  5. RIBAVIRIN. [Suspect]
     Active Substance: RIBAVIRIN
     Indication: HEPATITIS C
     Dosage: DIVIDED DOSES
     Route: 048

REACTIONS (3)
  - Fatigue [Unknown]
  - Rash macular [Recovering/Resolving]
  - Liver injury [Not Recovered/Not Resolved]

NARRATIVE: CASE EVENT DATE: 20100115
